FAERS Safety Report 17127587 (Version 1)
Quarter: 2019Q4

REPORT INFORMATION
  Report Type: Spontaneous
  Country: GB (occurrence: GB)
  Receive Date: 20191209
  Receipt Date: 20191209
  Transmission Date: 20200122
  Serious: Yes (Other)
  Sender: FDA-Public Use
  Company Number: GB-ACCORD-163401

PATIENT
  Age: 55 Year
  Sex: Male

DRUGS (17)
  1. PREDNISOLONE. [Suspect]
     Active Substance: PREDNISOLONE
     Indication: IMMUNOSUPPRESSION
     Route: 065
  2. GANCICLOVIR. [Suspect]
     Active Substance: GANCICLOVIR
     Indication: CYTOMEGALOVIRUS VIRAEMIA
     Route: 042
  3. LEFLUNOMIDE. [Suspect]
     Active Substance: LEFLUNOMIDE
     Indication: CYTOMEGALOVIRUS INFECTION
     Dosage: UNKNOWN; SYSTEMIC; LONG-TERM ANTIVIRAL THERAPY
     Route: 065
  4. AZATHIOPRINE. [Suspect]
     Active Substance: AZATHIOPRINE
     Indication: IMMUNOSUPPRESSION
     Route: 065
  5. METHYLPREDNISOLONE. [Concomitant]
     Active Substance: METHYLPREDNISOLONE
  6. VALGANCICLOVIR/VALGANCICLOVIR HYDROCHLORIDE [Suspect]
     Active Substance: VALGANCICLOVIR
     Indication: CYTOMEGALOVIRUS INFECTION
     Dosage: 450 MG DAILY
     Route: 048
  7. GANCICLOVIR. [Suspect]
     Active Substance: GANCICLOVIR
     Indication: CYTOMEGALOVIRUS CHORIORETINITIS
     Dosage: 2.5 MG/KG, DAILY FOR 4 WEEKS
     Route: 031
  8. IMMUNOGLOBULIN CYTOMEGALOVIRUS [Suspect]
     Active Substance: HUMAN CYTOMEGALOVIRUS IMMUNE GLOBULIN
     Indication: CYTOMEGALOVIRUS INFECTION
     Dosage: WEEKLY
     Route: 065
  9. GANCICLOVIR. [Suspect]
     Active Substance: GANCICLOVIR
     Indication: CYTOMEGALOVIRUS CHORIORETINITIS
     Dosage: WEEKLY LEFT EYE INTRAVITREAL GCV (2 MG/0.1 ML) FOR 4 WEEKS
     Route: 031
  10. SIROLIMUS. [Suspect]
     Active Substance: SIROLIMUS
     Indication: ANTIVIRAL TREATMENT
     Dosage: 1.5 MG DAILY
     Route: 065
  11. ANTITHYMOCYTE IMMUNOGLOBULIN ( [Suspect]
     Active Substance: THYMOCYTE IMMUNE GLOBULIN NOS
     Indication: IMMUNOSUPPRESSION
     Dosage: FOR 3 DAYS
     Route: 065
  12. CICLOSPORIN [Suspect]
     Active Substance: CYCLOSPORINE
     Indication: IMMUNOSUPPRESSION
  13. IMMUNOGLOBULIN CYTOMEGALOVIRUS [Suspect]
     Active Substance: HUMAN CYTOMEGALOVIRUS IMMUNE GLOBULIN
     Indication: CYTOMEGALOVIRUS CHORIORETINITIS
     Dosage: 2 MG/KG FOR 4 WEEKS
     Route: 065
  14. PREDNISOLONE. [Suspect]
     Active Substance: PREDNISOLONE
     Indication: ANTIVIRAL TREATMENT
     Dosage: 5 MG DAILY
     Route: 065
  15. PREDNISOLONE. [Suspect]
     Active Substance: PREDNISOLONE
     Indication: ANTIVIRAL TREATMENT
     Dosage: 8 MG DAILY; FOR 2 MONTHS
     Route: 065
  16. TACROLIMUS. [Suspect]
     Active Substance: TACROLIMUS
     Indication: ANTIVIRAL TREATMENT
     Dosage: 2 MG TWICE DAILY
     Route: 048
  17. FOSCARNET [Suspect]
     Active Substance: FOSCARNET
     Indication: CYTOMEGALOVIRUS INFECTION
     Dosage: 2.4 MG/0.1 ML WAS INITIATED IN THE RIGHT THEN THE LEFT EYE AND REPEATED AT 1-2-WEEK INTERVALS
     Route: 031

REACTIONS (7)
  - Nephropathy toxic [Recovered/Resolved]
  - Renal impairment [Recovered/Resolved]
  - Cytomegalovirus infection [Recovered/Resolved]
  - Pneumonia cytomegaloviral [Recovered/Resolved]
  - Drug resistance [Unknown]
  - Off label use [Unknown]
  - Cytomegalovirus chorioretinitis [Recovered/Resolved]
